FAERS Safety Report 18972464 (Version 1)
Quarter: 2021Q1

REPORT INFORMATION
  Report Type: Report from Study
  Country: EG (occurrence: EG)
  Receive Date: 20210305
  Receipt Date: 20210305
  Transmission Date: 20210420
  Serious: Yes (Other)
  Sender: FDA-Public Use
  Company Number: NVSC2021EG046281

PATIENT
  Age: 38 Year
  Sex: Female

DRUGS (2)
  1. PARAMOL [Concomitant]
     Indication: PRODUCT USED FOR UNKNOWN INDICATION
     Dosage: UNK
     Route: 065
  2. GILENYA [Suspect]
     Active Substance: FINGOLIMOD HYDROCHLORIDE
     Indication: MULTIPLE SCLEROSIS
     Dosage: 0.5 MG, QD
     Route: 048
     Dates: start: 201911, end: 20210109

REACTIONS (3)
  - Speech disorder [Not Recovered/Not Resolved]
  - Salivary hypersecretion [Recovering/Resolving]
  - Neuritis cranial [Not Recovered/Not Resolved]

NARRATIVE: CASE EVENT DATE: 20201223
